FAERS Safety Report 5443800-1 (Version None)
Quarter: 2007Q3

REPORT INFORMATION
  Report Type: 
  Country: None (occurrence: None)
  Receive Date: 20070905
  Receipt Date: 20070824
  Transmission Date: 20080115
  Serious: Yes (Other)
  Sender: FDA-Public Use
  Company Number: DE-PFIZER INC-2007071335

PATIENT
  Sex: Male

DRUGS (2)
  1. LYRICA [Suspect]
     Dosage: DAILY DOSE:375MG
     Route: 048
  2. MIRTAZAPINE [Concomitant]

REACTIONS (1)
  - TRANSAMINASES INCREASED [None]
